FAERS Safety Report 7170435-5 (Version None)
Quarter: 2010Q4

REPORT INFORMATION
  Report Type: 
  Country: None (occurrence: None)
  Receive Date: 20101217
  Receipt Date: 20101207
  Transmission Date: 20110411
  Serious: Yes (Hospitalization)
  Sender: FDA-Public Use
  Company Number: FR-SANOFI-AVENTIS-2010SA071744

PATIENT
  Age: 83 Year
  Sex: Female

DRUGS (4)
  1. MULTAQ [Suspect]
     Indication: ATRIAL FIBRILLATION
     Route: 048
     Dates: start: 20101027, end: 20101123
  2. STRESAM [Concomitant]
     Indication: STRESS
     Route: 048
     Dates: start: 20101102
  3. LEXOMIL [Concomitant]
     Indication: ANXIETY
     Route: 048
  4. STILNOX [Concomitant]
     Indication: ANXIETY
     Route: 048

REACTIONS (2)
  - ATRIAL FIBRILLATION [None]
  - PULMONARY OEDEMA [None]
